FAERS Safety Report 10244180 (Version 1)
Quarter: 2014Q2

REPORT INFORMATION
  Report Type: Spontaneous
  Country: US (occurrence: US)
  Receive Date: 20140618
  Receipt Date: 20140618
  Transmission Date: 20141212
  Serious: No
  Sender: FDA-Public Use
  Company Number: US-GLAXOSMITHKLINE-A1071640A

PATIENT
  Age: 24 Year
  Sex: Male

DRUGS (3)
  1. LAMICTAL [Suspect]
     Indication: BIPOLAR DISORDER
     Dosage: 200MG PER DAY
     Route: 048
     Dates: start: 20101103, end: 201405
  2. UNSPECIFIED MEDICATION [Suspect]
     Indication: BIPOLAR DISORDER
     Route: 065
  3. LAMICTAL [Suspect]
     Indication: CONVULSION
     Dosage: 200MG PER DAY
     Route: 048
     Dates: start: 20090925, end: 20101103

REACTIONS (7)
  - Drug eruption [Recovered/Resolved]
  - Rash pruritic [Recovered/Resolved]
  - Mania [Unknown]
  - Headache [Unknown]
  - Dizziness [Unknown]
  - Malaise [Unknown]
  - Urticaria [Recovered/Resolved]
